FAERS Safety Report 5585148-0 (Version None)
Quarter: 2008Q1

REPORT INFORMATION
  Report Type: 
  Country: None (occurrence: None)
  Receive Date: 20080107
  Receipt Date: 20080107
  Transmission Date: 20080703
  Serious: No
  Sender: FDA-Public Use
  Company Number: None

PATIENT
  Age: 53 Year
  Sex: Female

DRUGS (13)
  1. AUGMENTIN '250' [Suspect]
     Dates: start: 20051026, end: 20051104
  2. LIPITOR [Concomitant]
  3. CALCIUM [Concomitant]
  4. PRIMROSE OIL [Concomitant]
  5. FISH OIL [Concomitant]
  6. MULTI-VITAMIN [Concomitant]
  7. ATIVAN [Concomitant]
  8. MIRCETTE [Concomitant]
  9. NALTREXONE HYDROCHLORIDE [Concomitant]
  10. URSODIOL [Concomitant]
  11. POTASSIUM CHLORIDE [Concomitant]
  12. RIFAMPIN [Concomitant]
  13. POTASSIUM CHLORIDE [Concomitant]

REACTIONS (10)
  - ALANINE AMINOTRANSFERASE INCREASED [None]
  - ANOREXIA [None]
  - ASPARTATE AMINOTRANSFERASE INCREASED [None]
  - BLOOD ALKALINE PHOSPHATASE INCREASED [None]
  - BLOOD BILIRUBIN INCREASED [None]
  - FAECES PALE [None]
  - JAUNDICE [None]
  - LIVER INJURY [None]
  - PRURITUS [None]
  - RASH [None]
